FAERS Safety Report 12219853 (Version 2)
Quarter: 2016Q2

REPORT INFORMATION
  Report Type: Spontaneous
  Country: US (occurrence: US)
  Receive Date: 20160330
  Receipt Date: 20160427
  Transmission Date: 20160815
  Serious: Yes (Other)
  Sender: FDA-Public Use
  Company Number: US-JNJCP-30000318867

PATIENT
  Age: 21 Year
  Sex: Female
  Weight: 68 kg

DRUGS (1)
  1. AVEENO ECZEMA THERAPY MOISTURIZING [Suspect]
     Active Substance: OATMEAL
     Indication: ECZEMA
     Dosage: PEA SIZE AMOUNT ONE TIME
     Route: 061
     Dates: start: 20151222, end: 20151222

REACTIONS (1)
  - Dermatitis contact [Recovered/Resolved]

NARRATIVE: CASE EVENT DATE: 20151222
